FAERS Safety Report 7907221-1 (Version None)
Quarter: 2011Q4

REPORT INFORMATION
  Report Type: 
  Country: None (occurrence: None)
  Receive Date: 20111110
  Receipt Date: 20111106
  Transmission Date: 20120403
  Serious: Yes (Hospitalization)
  Sender: FDA-Public Use
  Company Number: US-ABBOTT-11P-163-0872202-00

PATIENT
  Sex: Male
  Weight: 65.83 kg

DRUGS (9)
  1. FLAGYL [Concomitant]
     Indication: PROPHYLAXIS
  2. FERROUS SULFATE TAB [Concomitant]
     Indication: PRODUCT USED FOR UNKNOWN INDICATION
  3. HUMIRA [Suspect]
     Indication: CROHN'S DISEASE
     Dosage: (160 MG), ONCE
     Route: 058
     Dates: start: 20111020, end: 20111020
  4. HUMIRA [Suspect]
  5. AZATHIOPRINE [Concomitant]
     Indication: PRODUCT USED FOR UNKNOWN INDICATION
  6. APRISO [Concomitant]
     Indication: PRODUCT USED FOR UNKNOWN INDICATION
  7. MULTIVITAMIN [Concomitant]
     Indication: PRODUCT USED FOR UNKNOWN INDICATION
     Dosage: EQUATE BRAND
  8. FLAGYL [Concomitant]
     Indication: CLOSTRIDIAL INFECTION
  9. LORTAB [Concomitant]
     Indication: PAIN

REACTIONS (5)
  - DEHYDRATION [None]
  - CLOSTRIDIAL INFECTION [None]
  - HAEMATOCHEZIA [None]
  - NAUSEA [None]
  - WEIGHT DECREASED [None]
